FAERS Safety Report 11088355 (Version 1)
Quarter: 2015Q2

REPORT INFORMATION
  Report Type: Spontaneous
  Country: US (occurrence: None)
  Receive Date: 20150430
  Receipt Date: 20150430
  Transmission Date: 20150821
  Serious: Yes (Hospitalization)
  Sender: FDA-Public Use
  Company Number: US-LHC-2015048

PATIENT
  Age: 62 Year
  Sex: Male

DRUGS (3)
  1. NITROUS OXIDE. [Suspect]
     Active Substance: NITROUS OXIDE
     Indication: ANAESTHESIA
     Route: 055
  2. IRON SUPPLEMENTATION [Concomitant]
  3. ANTICOAGULANTIA [Concomitant]

REACTIONS (11)
  - Dysgeusia [None]
  - Hypoaesthesia [None]
  - Vitamin B12 deficiency [None]
  - Burning sensation [None]
  - Fall [None]
  - Condition aggravated [None]
  - Decreased appetite [None]
  - Balance disorder [None]
  - Activities of daily living impaired [None]
  - Confusional state [None]
  - Bradyphrenia [None]
